FAERS Safety Report 18716348 (Version 1)
Quarter: 2021Q1

REPORT INFORMATION
  Report Type: Spontaneous
  Country: US (occurrence: US)
  Receive Date: 20210107
  Receipt Date: 20210107
  Transmission Date: 20210419
  Serious: Yes (Hospitalization)
  Sender: FDA-Public Use
  Company Number: None

PATIENT
  Age: 64 Year
  Weight: 91.6 kg

DRUGS (17)
  1. GAMUNEX [Suspect]
     Active Substance: HUMAN IMMUNOGLOBULIN G
     Route: 042
     Dates: start: 20200306
  2. HYDROCODONE?APAP [Concomitant]
     Active Substance: ACETAMINOPHEN\HYDROCODONE
  3. NIFEDIPINE. [Concomitant]
     Active Substance: NIFEDIPINE
  4. SERTRALINE [Concomitant]
     Active Substance: SERTRALINE HYDROCHLORIDE
  5. HYDRALAZINE HCL [Concomitant]
     Active Substance: HYDRALAZINE HYDROCHLORIDE
  6. CHLORTHALIDONE. [Concomitant]
     Active Substance: CHLORTHALIDONE
  7. LORAZEPAM. [Concomitant]
     Active Substance: LORAZEPAM
  8. ELIQUIS [Concomitant]
     Active Substance: APIXABAN
  9. KETOROLAC [Concomitant]
     Active Substance: KETOROLAC TROMETHAMINE
  10. LISINOPRIL?HCTZ [Concomitant]
     Active Substance: HYDROCHLOROTHIAZIDE\LISINOPRIL
  11. ASPIRIN. [Concomitant]
     Active Substance: ASPIRIN
  12. METOPROLOL TARTRATE. [Concomitant]
     Active Substance: METOPROLOL TARTRATE
  13. ATORVASTATIN [Concomitant]
     Active Substance: ATORVASTATIN
  14. DISOPYRAMIDE PHOSPHATE. [Concomitant]
     Active Substance: DISOPYRAMIDE PHOSPHATE
  15. GLIMEPIRIDE. [Concomitant]
     Active Substance: GLIMEPIRIDE
  16. LISINOPRIL. [Concomitant]
     Active Substance: LISINOPRIL
  17. ACETAMINOPHEN. [Concomitant]
     Active Substance: ACETAMINOPHEN

REACTIONS (8)
  - Malaise [None]
  - Hyperventilation [None]
  - Feeling hot [None]
  - Abdominal pain upper [None]
  - Dyspnoea [None]
  - Anxiety [None]
  - Chest discomfort [None]
  - Syncope [None]

NARRATIVE: CASE EVENT DATE: 20201103
